FAERS Safety Report 6870119-4 (Version None)
Quarter: 2010Q3

REPORT INFORMATION
  Report Type: 
  Country: None (occurrence: None)
  Receive Date: 20100722
  Receipt Date: 20100714
  Transmission Date: 20110219
  Serious: Yes (Hospitalization)
  Sender: FDA-Public Use
  Company Number: IT-PFIZER INC-2010078722

PATIENT
  Age: 45 Year
  Sex: Female

DRUGS (2)
  1. ZOLOFT [Suspect]
     Indication: SUICIDE ATTEMPT
     Dosage: 15 UNITS, TOTAL
     Route: 048
     Dates: start: 20100326, end: 20100326
  2. RIVOTRIL [Suspect]
     Indication: SUICIDE ATTEMPT
     Dosage: 30 UNITS, TOTAL
     Route: 048
     Dates: start: 20100326, end: 20100326

REACTIONS (2)
  - DRUG TOXICITY [None]
  - OVERDOSE [None]
